FAERS Safety Report 6684826-X (Version None)
Quarter: 2010Q2

REPORT INFORMATION
  Report Type: 
  Country: None (occurrence: None)
  Receive Date: 20100416
  Receipt Date: 20100414
  Transmission Date: 20101027
  Serious: Yes (Other)
  Sender: FDA-Public Use
  Company Number: JP-EISAI INC.-E2020-06429-SPO-JP

PATIENT
  Sex: Female

DRUGS (3)
  1. ARICEPT [Suspect]
     Indication: DEMENTIA
     Route: 048
     Dates: end: 20100316
  2. ARICEPT [Suspect]
     Route: 048
     Dates: start: 20100317, end: 20100401
  3. ARICEPT [Suspect]
     Route: 048
     Dates: start: 20100401

REACTIONS (1)
  - DELIRIUM [None]
